FAERS Safety Report 4993937-6 (Version None)
Quarter: 2006Q2

REPORT INFORMATION
  Report Type: 
  Country: None (occurrence: None)
  Receive Date: 20060505
  Receipt Date: 20060426
  Transmission Date: 20061013
  Serious: Yes (Death)
  Sender: FDA-Public Use
  Company Number: US-GLAXOSMITHKLINE-A0603398A

PATIENT
  Age: 24 Year
  Sex: Male

DRUGS (3)
  1. WELLBUTRIN XL [Suspect]
     Indication: DRUG USE FOR UNKNOWN INDICATION
     Route: 065
  2. COCAINE [Concomitant]
  3. METHAMPHETAMINE HYDROCHLORIDE [Concomitant]

REACTIONS (2)
  - CARDIAC DISORDER [None]
  - HEART INJURY [None]
